FAERS Safety Report 9364801 (Version 3)
Quarter: 2013Q4

REPORT INFORMATION
  Report Type: Spontaneous
  Country: BR (occurrence: BR)
  Receive Date: 20130624
  Receipt Date: 20131001
  Transmission Date: 20140711
  Serious: Yes (Hospitalization, Other)
  Sender: FDA-Public Use
  Company Number: BR-ELI_LILLY_AND_COMPANY-BR201306003961

PATIENT
  Age: 15 Year
  Sex: Female
  Weight: 41 kg

DRUGS (8)
  1. HUMULIN NPH [Suspect]
     Indication: TYPE 1 DIABETES MELLITUS
     Dosage: 36 IU, EACH MORNING
     Route: 058
     Dates: start: 2004
  2. HUMULIN NPH [Suspect]
     Dosage: 22 IU, QD
     Route: 058
     Dates: start: 2004
  3. HUMULIN NPH [Suspect]
     Dosage: 13 IU, EACH EVENING
     Route: 058
     Dates: start: 2004
  4. HUMALOG LISPRO [Suspect]
     Indication: TYPE 1 DIABETES MELLITUS
     Dosage: UNK, PRN
     Route: 058
     Dates: start: 2004
  5. HUMULIN R [Suspect]
     Indication: BLOOD GLUCOSE INCREASED
     Dosage: UNK, PRN
     Route: 058
     Dates: start: 2004
  6. VALERIAAN [Concomitant]
     Indication: STRESS
     Dosage: 50 MG, BID
     Route: 065
     Dates: start: 201304
  7. FRISIUM [Concomitant]
     Indication: NERVOUS SYSTEM DISORDER
     Dosage: 10 MG, BID
     Route: 065
     Dates: start: 200912
  8. LAMOTRIGINA [Concomitant]
     Indication: NERVOUS SYSTEM DISORDER
     Dosage: 25 MG, BID
     Route: 065
     Dates: start: 2007

REACTIONS (5)
  - Epilepsy [Unknown]
  - Blood glucose increased [Unknown]
  - Arrhythmia [Unknown]
  - Diabetes mellitus inadequate control [Recovered/Resolved]
  - Blood glucose abnormal [Recovered/Resolved]
